FAERS Safety Report 4591779-7 (Version None)
Quarter: 2005Q1

REPORT INFORMATION
  Report Type: 
  Country: None (occurrence: None)
  Receive Date: 20050218
  Receipt Date: 20050207
  Transmission Date: 20050727
  Serious: Yes (Other)
  Sender: FDA-Public Use
  Company Number: 2005020085

PATIENT
  Age: 51 Year
  Sex: Female
  Weight: 81.6475 kg

DRUGS (5)
  1. ROGAINE [Suspect]
     Indication: ALOPECIA
     Dosage: 1 ML TWICE DAILY, TOPICAL
     Route: 061
     Dates: start: 20030301, end: 20031117
  2. VENLAFAXINE HYDROCHLORIDE (VENLFAXINE HYDROCHLORIDE) [Concomitant]
  3. ESOMEPRAZOLE (ESOMEPRAZOLE) [Concomitant]
  4. TOCOPHEROL (TOCOPHEROL) [Concomitant]
  5. ASCORBIC ACID [Concomitant]

REACTIONS (1)
  - BREAST CANCER FEMALE [None]
